FAERS Safety Report 18419900 (Version 2)
Quarter: 2023Q1

REPORT INFORMATION
  Report Type: Report from Study
  Country: NL (occurrence: NL)
  Receive Date: 20201023
  Receipt Date: 20230213
  Transmission Date: 20230417
  Serious: Yes (Hospitalization)
  Sender: FDA-Public Use
  Company Number: NL-PFIZER INC-2020397860

PATIENT
  Age: 57 Year
  Sex: Male

DRUGS (1)
  1. PALBOCICLIB [Suspect]
     Active Substance: PALBOCICLIB
     Indication: Colon cancer
     Dosage: 125 MG, 1X/DAY
     Dates: start: 20201002

REACTIONS (3)
  - Headache [Unknown]
  - Pyrexia [Recovered/Resolved]
  - Fatigue [Unknown]

NARRATIVE: CASE EVENT DATE: 20201012
